FAERS Safety Report 24036892 (Version 2)
Quarter: 2024Q3

REPORT INFORMATION
  Report Type: Spontaneous
  Country: US (occurrence: US)
  Receive Date: 20240701
  Receipt Date: 20240702
  Transmission Date: 20241017
  Serious: No
  Sender: PURDUE
  Company Number: US-PURDUE-USA-2024-0310488

PATIENT
  Age: 73 Year
  Sex: Female

DRUGS (1)
  1. ACETAMINOPHEN\OXYCODONE HYDROCHLORIDE [Suspect]
     Active Substance: ACETAMINOPHEN\OXYCODONE HYDROCHLORIDE
     Indication: Pain management
     Dosage: 1 TABLET EVERY 6 TO 8 HOURS (10/325 MG)
     Route: 048
     Dates: start: 20240626

REACTIONS (3)
  - Intentional product use issue [Not Recovered/Not Resolved]
  - Drug ineffective [Not Recovered/Not Resolved]
  - Suspected counterfeit product [Not Recovered/Not Resolved]

NARRATIVE: CASE EVENT DATE: 20240626
